FAERS Safety Report 6925613-4 (Version None)
Quarter: 2010Q3

REPORT INFORMATION
  Report Type: 
  Country: None (occurrence: None)
  Receive Date: 20100816
  Receipt Date: 20100806
  Transmission Date: 20110219
  Serious: Yes (Death)
  Sender: FDA-Public Use
  Company Number: US-PURDUE-USA-2010-0044327

PATIENT
  Sex: Male

DRUGS (2)
  1. OXYCONTIN [Suspect]
     Indication: BACK PAIN
     Dosage: 240 MG, DAILY
     Route: 048
     Dates: start: 20090604
  2. OXYCONTIN [Suspect]
     Indication: POLYNEUROPATHY

REACTIONS (1)
  - COMPLETED SUICIDE [None]
